FAERS Safety Report 16183558 (Version 1)
Quarter: 2019Q2

REPORT INFORMATION
  Report Type: Spontaneous
  Country: US (occurrence: US)
  Receive Date: 20190411
  Receipt Date: 20190411
  Transmission Date: 20190711
  Serious: Yes (Other)
  Sender: FDA-Public Use
  Company Number: US-AKORN PHARMACEUTICALS-2019AKN00580

PATIENT
  Age: 16 Year
  Sex: Male
  Weight: 60.32 kg

DRUGS (4)
  1. MYORISAN [Suspect]
     Active Substance: ISOTRETINOIN
     Indication: ACNE CONGLOBATA
     Dosage: 30 MG, 1X/DAY
     Route: 048
     Dates: start: 20181012, end: 20190227
  2. MYORISAN [Suspect]
     Active Substance: ISOTRETINOIN
     Indication: ACNE CONGLOBATA
     Dosage: UNK
     Route: 048
     Dates: start: 20181221, end: 20190227
  3. MYORISAN [Suspect]
     Active Substance: ISOTRETINOIN
     Indication: SCAR
  4. MYORISAN [Suspect]
     Active Substance: ISOTRETINOIN
     Indication: SCAR

REACTIONS (12)
  - Crying [Unknown]
  - Dry eye [Unknown]
  - Arthralgia [Recovering/Resolving]
  - Anger [Recovered/Resolved]
  - Depressed mood [Recovered/Resolved]
  - Abdominal pain [Unknown]
  - Depression [Recovered/Resolved]
  - Myalgia [Unknown]
  - Asthenia [Unknown]
  - Off label use [Recovered/Resolved]
  - Mood altered [Recovered/Resolved]
  - Aggression [Recovered/Resolved]

NARRATIVE: CASE EVENT DATE: 20181012
